FAERS Safety Report 12642128 (Version 2)
Quarter: 2016Q3

REPORT INFORMATION
  Report Type: Spontaneous
  Country: PL (occurrence: PL)
  Receive Date: 20160810
  Receipt Date: 20160811
  Transmission Date: 20161109
  Serious: Yes (Hospitalization, Other)
  Sender: FDA-Public Use
  Company Number: PHHY2016PL108137

PATIENT
  Age: 70 Year
  Sex: Male

DRUGS (6)
  1. BASILIXIMAB [Suspect]
     Active Substance: BASILIXIMAB
     Indication: RENAL TRANSPLANT
     Route: 065
  2. MYCOPHENOLATE MOFETIL. [Suspect]
     Active Substance: MYCOPHENOLATE MOFETIL
     Indication: IMMUNOSUPPRESSANT DRUG THERAPY
  3. TACROLIMUS. [Suspect]
     Active Substance: TACROLIMUS
     Indication: RENAL TRANSPLANT
     Route: 065
  4. TACROLIMUS. [Suspect]
     Active Substance: TACROLIMUS
     Indication: IMMUNOSUPPRESSANT DRUG THERAPY
  5. BASILIXIMAB [Suspect]
     Active Substance: BASILIXIMAB
     Indication: IMMUNOSUPPRESSANT DRUG THERAPY
  6. MYCOPHENOLATE MOFETIL. [Suspect]
     Active Substance: MYCOPHENOLATE MOFETIL
     Indication: RENAL TRANSPLANT
     Dosage: 2000 MG, UNK
     Route: 065

REACTIONS (11)
  - Tubulointerstitial nephritis [Unknown]
  - Delayed graft function [Recovering/Resolving]
  - Polyomavirus-associated nephropathy [Recovered/Resolved]
  - Kidney transplant rejection [Recovered/Resolved]
  - BK virus infection [Recovered/Resolved]
  - Renal tubular necrosis [Unknown]
  - Basal cell carcinoma [Unknown]
  - Glomerular filtration rate decreased [Unknown]
  - Pneumonia bacterial [Recovered/Resolved]
  - Viraemia [Recovered/Resolved]
  - Arteriosclerosis [Unknown]
